FAERS Safety Report 5653400-6 (Version None)
Quarter: 2008Q1

REPORT INFORMATION
  Report Type: 
  Country: None (occurrence: None)
  Receive Date: 20080306
  Receipt Date: 20080228
  Transmission Date: 20080703
  Serious: Yes (Hospitalization)
  Sender: FDA-Public Use
  Company Number: A0712467A

PATIENT
  Age: 78 Year
  Sex: Male

DRUGS (12)
  1. AVANDIA [Suspect]
     Indication: TYPE 2 DIABETES MELLITUS
     Dosage: 4MG PER DAY
     Route: 048
     Dates: start: 20040101
  2. LIPITOR [Concomitant]
  3. GLIPIZIDE [Concomitant]
  4. ALTACE [Concomitant]
  5. INSULIN [Concomitant]
  6. PROTONIX [Concomitant]
  7. CELEBREX [Concomitant]
  8. FLOMAX [Concomitant]
  9. INDOMETHACIN [Concomitant]
  10. MODURETIC 5-50 [Concomitant]
  11. DETROL [Concomitant]
  12. ASPIRIN [Concomitant]

REACTIONS (2)
  - GASTROENTERITIS VIRAL [None]
  - WEIGHT INCREASED [None]
